FAERS Safety Report 5407513-4 (Version None)
Quarter: 2007Q3

REPORT INFORMATION
  Report Type: 
  Country: None (occurrence: None)
  Receive Date: 20070807
  Receipt Date: 20070726
  Transmission Date: 20080115
  Serious: Yes (Death)
  Sender: FDA-Public Use
  Company Number: GB-PFIZER INC-2007062333

PATIENT
  Age: 23 Year
  Sex: Female
  Weight: 70 kg

DRUGS (4)
  1. SERTRALINE [Suspect]
     Indication: DEPRESSION
     Route: 048
  2. MICROGYNON [Concomitant]
     Route: 048
  3. NUROFEN [Concomitant]
     Route: 048
  4. ANTIBIOTICS [Concomitant]

REACTIONS (1)
  - DEATH [None]
